FAERS Safety Report 19205787 (Version 2)
Quarter: 2024Q3

REPORT INFORMATION
  Report Type: Spontaneous
  Country: US (occurrence: None)
  Receive Date: 20210503
  Receipt Date: 20240906
  Transmission Date: 20241016
  Serious: No
  Sender: DOMPE FARMACEUTICI
  Company Number: US-FARMAPROD-202103-0307

PATIENT
  Age: 59 Year
  Sex: Female
  Weight: 102.06 kg

DRUGS (13)
  1. OXERVATE [Suspect]
     Active Substance: CENEGERMIN-BKBJ
     Indication: Neurotrophic keratopathy
     Route: 047
     Dates: start: 20210223, end: 20210420
  2. OXERVATE [Suspect]
     Active Substance: CENEGERMIN-BKBJ
     Indication: Neurotrophic keratopathy
     Route: 047
     Dates: start: 20230831
  3. LAMICTAL [Concomitant]
     Active Substance: LAMOTRIGINE
  4. FLONASE ALLERGY RELIEF [Concomitant]
     Active Substance: FLUTICASONE PROPIONATE
  5. PROBIOTIC 10B CELL [Concomitant]
  6. VYVANSE [Concomitant]
     Active Substance: LISDEXAMFETAMINE DIMESYLATE
  7. FLUOXETINE HYDROCHLORIDE [Concomitant]
     Active Substance: FLUOXETINE HYDROCHLORIDE
  8. OMEPRAZOLE [Concomitant]
     Active Substance: OMEPRAZOLE
     Dosage: DELAYED RELEASE TABLET
  9. VITAMINS [Concomitant]
     Active Substance: VITAMINS
     Dosage: DAILY
  10. LYRICA [Concomitant]
     Active Substance: PREGABALIN
  11. CITRACAL-D3 [Concomitant]
     Dosage: GUMMY
  12. FLUTICASONE PROPIONATE [Concomitant]
     Active Substance: FLUTICASONE PROPIONATE
     Dosage: SPRAY
  13. VITAMIN D-400 [Concomitant]

REACTIONS (3)
  - Eye pain [Unknown]
  - Periorbital swelling [Unknown]
  - Dizziness [Unknown]

NARRATIVE: CASE EVENT DATE: 20210225
